FAERS Safety Report 9792557 (Version 1)
Quarter: 2014Q1

REPORT INFORMATION
  Report Type: Spontaneous
  Country: US (occurrence: US)
  Receive Date: 20140102
  Receipt Date: 20140102
  Transmission Date: 20141002
  Serious: No
  Sender: FDA-Public Use
  Company Number: US-SA-2013SA095864

PATIENT
  Sex: Female

DRUGS (1)
  1. AUBAGIO [Suspect]
     Indication: MULTIPLE SCLEROSIS
     Dosage: TAKEN TO- 2 MONTHS AGO
     Route: 048

REACTIONS (3)
  - Diarrhoea [Recovered/Resolved]
  - Hepatic enzyme increased [Recovered/Resolved]
  - Nausea [Recovered/Resolved]
